FAERS Safety Report 25836285 (Version 1)
Quarter: 2025Q3

REPORT INFORMATION
  Report Type: Spontaneous
  Country: US (occurrence: US)
  Receive Date: 20250923
  Receipt Date: 20250923
  Transmission Date: 20251020
  Serious: No
  Sender: Haleon PLC
  Company Number: US-HALEON-2264151

PATIENT

DRUGS (2)
  1. VOLTAREN ARTHRITIS PAIN [Suspect]
     Active Substance: DICLOFENAC SODIUM
     Indication: Bursitis
  2. TYLENOL [Concomitant]
     Active Substance: ACETAMINOPHEN
     Indication: Bursitis

REACTIONS (3)
  - Application site pain [Unknown]
  - Application site swelling [Unknown]
  - Product use in unapproved indication [Unknown]
